FAERS Safety Report 22517420 (Version 2)
Quarter: 2023Q2

REPORT INFORMATION
  Report Type: Other
  Country: PT (occurrence: PT)
  Receive Date: 20230603
  Receipt Date: 20230629
  Transmission Date: 20230721
  Serious: Yes (Other)
  Sender: FDA-Public Use
  Company Number: PT-CELLTRION INC.-2023PT011315

PATIENT

DRUGS (2)
  1. TRASTUZUMAB [Suspect]
     Active Substance: TRASTUZUMAB
     Indication: HER2 positive breast cancer
     Dosage: 1.8 MG/KG FOLLOWING CYCLES: 6 MG/KG) EVERY 21 DAYS
     Route: 065
     Dates: start: 20180219
  2. PERTUZUMAB [Suspect]
     Active Substance: PERTUZUMAB
     Indication: HER2 positive breast cancer
     Dosage: 1.84 MILLIGRAM EVERY 21 DAYS
     Route: 065
     Dates: start: 20180219

REACTIONS (6)
  - Disease progression [Unknown]
  - Haematotoxicity [Unknown]
  - Fluid retention [Unknown]
  - Vomiting [Unknown]
  - Nausea [Unknown]
  - Incorrect dose administered [Unknown]
